FAERS Safety Report 11662243 (Version 1)
Quarter: 2015Q4

REPORT INFORMATION
  Report Type: Report from Study
  Country: US (occurrence: US)
  Receive Date: 20151026
  Receipt Date: 20151026
  Transmission Date: 20160304
  Serious: Yes (Other)
  Sender: FDA-Public Use
  Company Number: US-AMGEN-USACT2015111981

PATIENT
  Age: 74 Year
  Sex: Female

DRUGS (4)
  1. ROMIDEPSIN [Suspect]
     Active Substance: ROMIDEPSIN
     Indication: NON-HODGKIN^S LYMPHOMA
     Dosage: 8 MG/M2, PER CHEMO REGIM
     Route: 065
     Dates: start: 20150904
  2. DEXAMETHASONE. [Concomitant]
     Active Substance: DEXAMETHASONE
     Dosage: UNK
     Dates: start: 20150904
  3. CARFILZOMIB [Suspect]
     Active Substance: CARFILZOMIB
     Indication: NON-HODGKIN^S LYMPHOMA
     Dosage: 45 MG/M2, PER CHEMO REGIM
     Route: 065
     Dates: start: 20150904
  4. LENALIDOMIDE [Suspect]
     Active Substance: LENALIDOMIDE
     Indication: NON-HODGKIN^S LYMPHOMA
     Dosage: 15 MG, PER CHEMO REGIM
     Route: 065
     Dates: start: 20150904

REACTIONS (1)
  - Embolism [Unknown]

NARRATIVE: CASE EVENT DATE: 20151020
